FAERS Safety Report 22027986 (Version 1)
Quarter: 2023Q1

REPORT INFORMATION
  Report Type: Spontaneous
  Country: US (occurrence: None)
  Receive Date: 20230220
  Receipt Date: 20230220
  Transmission Date: 20230418
  Serious: Yes (Other)
  Sender: FDA-Public Use
  Company Number: None

PATIENT
  Age: 9 Year
  Sex: Male
  Weight: 34.65 kg

DRUGS (6)
  1. METHYLPHENIDATE [Suspect]
     Active Substance: METHYLPHENIDATE
     Indication: Attention deficit hyperactivity disorder
     Route: 048
  2. METHYLPHENIDATE [Concomitant]
     Active Substance: METHYLPHENIDATE
  3. Venlafaxine HCL ER [Concomitant]
  4. QELBREE [Concomitant]
     Active Substance: VILOXAZINE HYDROCHLORIDE
  5. OMEGA 3 [Concomitant]
     Active Substance: CAPSAICIN
  6. MELATONIN [Concomitant]
     Active Substance: MELATONIN

REACTIONS (5)
  - Product substitution issue [None]
  - Therapeutic response shortened [None]
  - Sluggishness [None]
  - Irritability [None]
  - Behaviour disorder [None]

NARRATIVE: CASE EVENT DATE: 20230120
